FAERS Safety Report 6091083-4 (Version None)
Quarter: 2009Q1

REPORT INFORMATION
  Report Type: 
  Country: None (occurrence: None)
  Receive Date: 20090225
  Receipt Date: 20090216
  Transmission Date: 20090719
  Serious: Yes (Hospitalization)
  Sender: FDA-Public Use
  Company Number: FR-JNJFOC-20090203744

PATIENT
  Age: 88 Year
  Sex: Female

DRUGS (12)
  1. OFLOCET [Suspect]
     Route: 048
  2. OFLOCET [Suspect]
     Indication: DRUG USE FOR UNKNOWN INDICATION
     Route: 048
  3. LASIX [Suspect]
     Route: 048
  4. LASIX [Suspect]
     Indication: DRUG USE FOR UNKNOWN INDICATION
     Route: 048
  5. KARDEGIC [Suspect]
     Route: 048
  6. KARDEGIC [Suspect]
     Indication: DRUG USE FOR UNKNOWN INDICATION
     Route: 048
  7. COVERSYL [Suspect]
     Indication: DRUG USE FOR UNKNOWN INDICATION
     Route: 048
  8. TAHOR [Concomitant]
     Route: 048
  9. CARDENSIEL [Concomitant]
     Route: 048
  10. DIFFU K [Concomitant]
     Route: 048
  11. DIFFU K [Concomitant]
     Route: 048
  12. ARIXTRA [Concomitant]
     Route: 058

REACTIONS (2)
  - ACUTE CORONARY SYNDROME [None]
  - RENAL FAILURE [None]
